FAERS Safety Report 4647901-7 (Version None)
Quarter: 2005Q2

REPORT INFORMATION
  Report Type: 
  Country: None (occurrence: None)
  Receive Date: 20050428
  Receipt Date: 20050330
  Transmission Date: 20051028
  Serious: Yes (Other)
  Sender: FDA-Public Use
  Company Number: PHBS2005JP04450

PATIENT
  Age: 35 Year
  Sex: Female

DRUGS (4)
  1. TEGRETOL [Suspect]
     Indication: EPILEPSY
     Route: 048
  2. TEGRETOL [Suspect]
     Dosage: 500 MG/DAY
     Route: 048
  3. QUETIAPINE FUMARATE [Suspect]
     Indication: EPILEPSY
     Dosage: 50 MG/DAY
     Route: 048
  4. QUETIAPINE FUMARATE [Suspect]
     Dosage: 25 MG/DAY
     Route: 048

REACTIONS (5)
  - CONVULSION [None]
  - DRUG INTERACTION [None]
  - DRUG LEVEL DECREASED [None]
  - HALLUCINATION, AUDITORY [None]
  - PERSECUTORY DELUSION [None]
